FAERS Safety Report 25407749 (Version 1)
Quarter: 2025Q2

REPORT INFORMATION
  Report Type: Spontaneous
  Country: AU (occurrence: None)
  Receive Date: 20250606
  Receipt Date: 20250606
  Transmission Date: 20250716
  Serious: Yes (Life-Threatening, Hospitalization, Other)
  Sender: FDA-CTU
  Company Number: None

PATIENT
  Age: 62 Year
  Sex: Female
  Weight: 80 kg

DRUGS (1)
  1. PAROXETINE HYDROCHLORIDE [Suspect]
     Active Substance: PAROXETINE HYDROCHLORIDE
     Indication: Anxiety
     Route: 048

REACTIONS (17)
  - Withdrawal syndrome [None]
  - Back pain [None]
  - Tremor [None]
  - Hyperhidrosis [None]
  - Hypertensive crisis [None]
  - Headache [None]
  - Akathisia [None]
  - Skin burning sensation [None]
  - Neuralgia [None]
  - Pain [None]
  - Electric shock sensation [None]
  - Nausea [None]
  - Diarrhoea [None]
  - Hyperacusis [None]
  - Middle insomnia [None]
  - Temperature regulation disorder [None]
  - Tinnitus [None]

NARRATIVE: CASE EVENT DATE: 20231026
